FAERS Safety Report 25119187 (Version 1)
Quarter: 2025Q1

REPORT INFORMATION
  Report Type: Spontaneous
  Country: US (occurrence: US)
  Receive Date: 20250325
  Receipt Date: 20250325
  Transmission Date: 20250409
  Serious: No
  Sender: ROCHE
  Company Number: US-ROCHE-10000233231

PATIENT
  Sex: Female

DRUGS (3)
  1. XOLAIR [Suspect]
     Active Substance: OMALIZUMAB
     Indication: Idiopathic urticaria
     Dosage: STRENGTH: 300MG/2ML
     Route: 058
     Dates: start: 202207
  2. XOLAIR PFS [Concomitant]
     Active Substance: OMALIZUMAB
     Indication: Idiopathic urticaria
     Route: 058
  3. XOLAIR PFS [Concomitant]
     Active Substance: OMALIZUMAB

REACTIONS (4)
  - Pharyngeal enanthema [Unknown]
  - Erythema [Unknown]
  - Swelling face [Unknown]
  - Dysphonia [Unknown]
